FAERS Safety Report 10744454 (Version 1)
Quarter: 2015Q1

REPORT INFORMATION
  Report Type: Spontaneous
  Country: US (occurrence: US)
  Receive Date: 20150128
  Receipt Date: 20150128
  Transmission Date: 20150721
  Serious: Yes (Hospitalization)
  Sender: FDA-Public Use
  Company Number: US-JNJFOC-20150110009

PATIENT
  Age: 70 Year
  Sex: Male
  Weight: 49.9 kg

DRUGS (3)
  1. XANAX [Concomitant]
     Active Substance: ALPRAZOLAM
     Route: 065
  2. TYLENOL WITH CODEINE [Suspect]
     Active Substance: ACETAMINOPHEN\CODEINE PHOSPHATE
     Indication: PAIN
     Dosage: 325 MG APAP/ TABLET (8 GRAMS APAP PER DAY); FOR OVER A YEAR
     Route: 048
  3. BACLOFEN. [Concomitant]
     Active Substance: BACLOFEN
     Route: 065

REACTIONS (3)
  - Hepatomegaly [Unknown]
  - Overdose [Unknown]
  - Eating disorder [Unknown]

NARRATIVE: CASE EVENT DATE: 20050405
